FAERS Safety Report 19899290 (Version 4)
Quarter: 2021Q4

REPORT INFORMATION
  Report Type: Report from Study
  Country: JP (occurrence: JP)
  Receive Date: 20210929
  Receipt Date: 20211110
  Transmission Date: 20220304
  Serious: Yes (Other)
  Sender: FDA-Public Use
  Company Number: JP-LUNDBECK-DKLU3038776

PATIENT
  Age: 27 Year
  Sex: Female
  Weight: 42.9 kg

DRUGS (11)
  1. EPTINEZUMAB [Suspect]
     Active Substance: EPTINEZUMAB
     Indication: Migraine
     Dosage: UNIT DOSE: 100 MILLIGRAM; VOLUME OF SOLUTION LEFT OVER IN THE BAG: 55 ML
     Route: 041
     Dates: start: 20210901, end: 20210901
  2. Rebapimide [Concomitant]
     Indication: Gastroenteritis
     Route: 048
     Dates: start: 20210719, end: 20210725
  3. CLOSTRIDIUM BUTYRICUM SPORES STRAIN M-55 [Concomitant]
     Active Substance: CLOSTRIDIUM BUTYRICUM SPORES STRAIN M-55
     Indication: Gastroenteritis
     Route: 048
     Dates: start: 20210719, end: 20210725
  4. FAMOTIDINE [Concomitant]
     Active Substance: FAMOTIDINE
     Indication: Gastroenteritis
     Route: 048
     Dates: start: 20210719, end: 20210725
  5. Timepidium Bromide Hydrate [Concomitant]
     Indication: Gastroenteritis
     Dosage: PRN
     Route: 048
     Dates: start: 20210719, end: 20210723
  6. IBUPROFEN [Concomitant]
     Active Substance: IBUPROFEN
     Indication: Migraine
     Dosage: PRN
     Route: 048
     Dates: start: 20210501
  7. DIQUAFOSOL TETRASODIUM [Concomitant]
     Active Substance: DIQUAFOSOL TETRASODIUM
     Indication: Dry eye
     Route: 050
     Dates: start: 20210416
  8. Heparinoid 0.3% [Concomitant]
     Indication: Eczema
     Dosage: PRN, UNIT DOSE: 1 APPLICATION
     Route: 050
     Dates: start: 20210522
  9. Alclometasone Dipropionate 0.1% [Concomitant]
     Indication: Eczema
     Dosage: PRN, UNIT DOSE: 1 APPLICATION
     Route: 050
     Dates: start: 20210522
  10. Transino White C Clear [Concomitant]
     Indication: Acne
     Route: 048
     Dates: start: 202107
  11. NARATRIPTAN HYDROCHLORIDE [Concomitant]
     Active Substance: NARATRIPTAN HYDROCHLORIDE
     Indication: Migraine
     Dosage: PRN
     Route: 048
     Dates: start: 20200926

REACTIONS (1)
  - Anaphylactic reaction [Recovered/Resolved]

NARRATIVE: CASE EVENT DATE: 20210901
